APPROVED DRUG PRODUCT: AKYNZEO
Active Ingredient: FOSNETUPITANT CHLORIDE HYDROCHLORIDE; PALONOSETRON HYDROCHLORIDE
Strength: EQ 235MG BASE/VIAL;EQ 0.25MG BASE/VIAL
Dosage Form/Route: POWDER;INTRAVENOUS
Application: N210493 | Product #001
Applicant: HELSINN HEALTHCARE SA
Approved: Apr 19, 2018 | RLD: Yes | RS: No | Type: DISCN

PATENTS:
Patent 10208073 | Expires: May 23, 2032
Patent 8895586 | Expires: May 23, 2032
Patent 9403772 | Expires: May 23, 2032
Patent 9186357 | Expires: Nov 18, 2030
Patent 10828297 | Expires: Dec 17, 2030
Patent 11312698 | Expires: May 23, 2032
Patent 8426450 | Expires: May 23, 2032
Patent 12208109 | Expires: Jun 2, 2037
Patent 11529362 | Expires: Jun 2, 2037
Patent 10624911 | Expires: Jun 2, 2037
Patent 9908907 | Expires: May 23, 2032
Patent 10717721 | Expires: May 23, 2032